FAERS Safety Report 7274719-1 (Version None)
Quarter: 2011Q1

REPORT INFORMATION
  Report Type: 
  Country: None (occurrence: None)
  Receive Date: 20110204
  Receipt Date: 20110201
  Transmission Date: 20110831
  Serious: Yes (Death)
  Sender: FDA-Public Use
  Company Number: FR-JNJFOC-20110200955

PATIENT
  Sex: Female

DRUGS (4)
  1. ACTIQ [Suspect]
     Indication: CANCER PAIN
     Route: 048
  2. DURAGESIC-100 [Suspect]
     Indication: CANCER PAIN
     Route: 062
  3. ACTIQ [Suspect]
     Dosage: 1600 MCG 4 TIMES PER DAY + 600 MCG AT AN UNKNOWN DOSE
     Route: 048
  4. MORPHINE [Concomitant]
     Indication: CANCER PAIN
     Route: 065

REACTIONS (2)
  - AMNESIA [None]
  - NEOPLASM MALIGNANT [None]
